FAERS Safety Report 23283014 (Version 1)
Quarter: 2023Q4

REPORT INFORMATION
  Report Type: Spontaneous
  Country: US (occurrence: US)
  Receive Date: 20231211
  Receipt Date: 20231211
  Transmission Date: 20240110
  Serious: No
  Sender: FDA-Public Use
  Company Number: US-IMMUNOGEN, INC.-US-IMGN-23-00485

PATIENT
  Age: 61 Year
  Sex: Female
  Weight: 50.34 kg

DRUGS (1)
  1. ELAHERE [Suspect]
     Active Substance: MIRVETUXIMAB SORAVTANSINE-GYNX
     Indication: Ovarian cancer
     Dosage: 280 MILLIGRAM, 3W
     Route: 042
     Dates: start: 20230727

REACTIONS (2)
  - Emotional distress [Unknown]
  - Illness [Unknown]
